FAERS Safety Report 17350411 (Version 2)
Quarter: 2020Q1

REPORT INFORMATION
  Report Type: Spontaneous
  Country: DK (occurrence: DK)
  Receive Date: 20200130
  Receipt Date: 20200206
  Transmission Date: 20200409
  Serious: Yes (Disabling)
  Sender: FDA-Public Use
  Company Number: DK-ASTRAZENECA-2020SE11894

PATIENT
  Age: 19 Year
  Sex: Female

DRUGS (3)
  1. PULMICORT TURBUHALER [Suspect]
     Active Substance: BUDESONIDE
     Indication: ASTHMA
     Dosage: STRENGTH AND DOSE UNKNOWN
     Route: 055
  2. SYMBICORT [Suspect]
     Active Substance: BUDESONIDE\FORMOTEROL FUMARATE DIHYDRATE
     Indication: ASTHMA
     Dosage: STRENGTH: 4.5+160 MICROGRAM/DOSE2.0DF UNKNOWN
     Route: 055
  3. GIONA EASYHALER [Suspect]
     Active Substance: BUDESONIDE
     Indication: ASTHMA
     Dosage: STRENGTH: 200 MICROGRAM/DOSE2.0DF UNKNOWN
     Route: 055

REACTIONS (7)
  - Cataract [Not Recovered/Not Resolved]
  - Headache [Unknown]
  - Night blindness [Not Recovered/Not Resolved]
  - Dyschromatopsia [Not Recovered/Not Resolved]
  - Diplopia [Not Recovered/Not Resolved]
  - Visual impairment [Not Recovered/Not Resolved]
  - Vision blurred [Not Recovered/Not Resolved]

NARRATIVE: CASE EVENT DATE: 201809
